FAERS Safety Report 11279306 (Version 1)
Quarter: 2015Q3

REPORT INFORMATION
  Report Type: Spontaneous
  Country: US (occurrence: US)
  Receive Date: 20150717
  Receipt Date: 20150717
  Transmission Date: 20151125
  Serious: No
  Sender: FDA-Public Use
  Company Number: US-PFIZER INC-2015231816

PATIENT
  Age: 63 Year
  Sex: Female
  Weight: 67.57 kg

DRUGS (2)
  1. IBRANCE [Suspect]
     Active Substance: PALBOCICLIB
     Indication: BREAST CANCER
     Dosage: 100 MG, CYCLIC (DAY 1-21 EVERY 28 DAYS)
     Route: 048
     Dates: start: 20150624
  2. DIGOXIN. [Suspect]
     Active Substance: DIGOXIN
     Dosage: UNK

REACTIONS (3)
  - Vomiting [Unknown]
  - Weight decreased [Unknown]
  - Nausea [Unknown]
